FAERS Safety Report 8520094-1 (Version None)
Quarter: 2012Q3

REPORT INFORMATION
  Report Type: 
  Country: None (occurrence: None)
  Receive Date: 20120719
  Receipt Date: 20120709
  Transmission Date: 20120928
  Serious: Yes (Other)
  Sender: FDA-Public Use
  Company Number: US-GENZYME-RENA-1001563

PATIENT
  Sex: Female

DRUGS (3)
  1. RENAGEL [Suspect]
     Indication: PRODUCT USED FOR UNKNOWN INDICATION
     Dosage: 3.6 G, QD
     Route: 065
     Dates: end: 20120101
  2. RENVELA [Suspect]
     Indication: PRODUCT USED FOR UNKNOWN INDICATION
     Dosage: 4.8
     Route: 065
     Dates: start: 20120101
  3. RENVELA [Suspect]
     Dosage: 7.2 G, QD
     Route: 065
     Dates: start: 20120101

REACTIONS (3)
  - BLOOD PARATHYROID HORMONE INCREASED [None]
  - CHOKING [None]
  - ORAL ADMINISTRATION COMPLICATION [None]
